FAERS Safety Report 9434752 (Version 1)
Quarter: 2013Q3

REPORT INFORMATION
  Report Type: Spontaneous
  Country: TR (occurrence: TR)
  Receive Date: 20130801
  Receipt Date: 20130801
  Transmission Date: 20140515
  Serious: Yes (Life-Threatening, Hospitalization, Other)
  Sender: FDA-Public Use
  Company Number: TR-RANBAXY-2013RR-71416

PATIENT
  Age: 29 Year
  Sex: Female

DRUGS (1)
  1. METFORMIN [Suspect]
     Indication: PRODUCT USED FOR UNKNOWN INDICATION
     Dosage: 80 G
     Route: 065

REACTIONS (4)
  - Intentional overdose [Unknown]
  - Suicide attempt [Recovered/Resolved]
  - Transaminases increased [Unknown]
  - Alcohol interaction [Recovered/Resolved]
